FAERS Safety Report 6189407-2 (Version None)
Quarter: 2009Q2

REPORT INFORMATION
  Report Type: 
  Country: None (occurrence: None)
  Receive Date: 20090512
  Receipt Date: 20090507
  Transmission Date: 20091009
  Serious: Yes (Death, Other)
  Sender: FDA-Public Use
  Company Number: 2008SP006617

PATIENT
  Age: 42 Year
  Sex: Female
  Weight: 70 kg

DRUGS (11)
  1. TEMODAL [Suspect]
     Indication: ANAPLASTIC ASTROCYTOMA
     Dosage: 150 MG/M2, QD, PO
     Route: 048
     Dates: start: 20061003, end: 20061007
  2. TEMODAL [Suspect]
     Indication: ANAPLASTIC ASTROCYTOMA
     Dosage: 150 MG/M2, QD, PO
     Route: 048
     Dates: start: 20061031, end: 20061104
  3. TEMODAL [Suspect]
     Indication: ANAPLASTIC ASTROCYTOMA
     Dosage: 150 MG/M2, QD, PO
     Route: 048
     Dates: start: 20061128, end: 20061202
  4. TEMODAL [Suspect]
     Indication: ANAPLASTIC ASTROCYTOMA
     Dosage: 150 MG/M2, QD, PO
     Route: 048
     Dates: start: 20061226, end: 20061230
  5. TEMODAL [Suspect]
     Indication: ANAPLASTIC ASTROCYTOMA
     Dosage: 150 MG/M2, QD, PO
     Route: 048
     Dates: start: 20070130, end: 20070203
  6. TEMODAL [Suspect]
     Indication: ANAPLASTIC ASTROCYTOMA
     Dosage: 150 MG/M2, QD, PO
     Route: 048
     Dates: start: 20070227, end: 20070303
  7. TEMODAL [Suspect]
     Indication: ANAPLASTIC ASTROCYTOMA
     Dosage: 150 MG/M2, QD, PO
     Route: 048
     Dates: start: 20070326, end: 20070330
  8. TEMODAL [Suspect]
     Indication: ANAPLASTIC ASTROCYTOMA
     Dosage: 150 MG/M2, QD, PO
     Route: 048
     Dates: start: 20070424, end: 20070428
  9. TEMODAL [Suspect]
     Indication: ANAPLASTIC ASTROCYTOMA
     Dosage: 150 MG/M2, QD, PO
     Route: 048
     Dates: start: 20070528, end: 20070601
  10. PROHEPARUM [Concomitant]
  11. PHENOBARBITAL TAB [Concomitant]

REACTIONS (4)
  - ANAPLASTIC ASTROCYTOMA [None]
  - DISEASE PROGRESSION [None]
  - HEPATIC STEATOSIS [None]
  - LIVER DISORDER [None]
